FAERS Safety Report 6917877-8 (Version None)
Quarter: 2010Q3

REPORT INFORMATION
  Report Type: 
  Country: None (occurrence: None)
  Receive Date: 20100810
  Receipt Date: 20090514
  Transmission Date: 20110219
  Serious: No
  Sender: FDA-Public Use
  Company Number: US-PFIZER INC-2009197612

PATIENT
  Sex: Female
  Weight: 77.1 kg

DRUGS (1)
  1. TOVIAZ [Suspect]
     Indication: MICTURITION DISORDER
     Dosage: 4 MG, 1X/DAY
     Route: 048
     Dates: start: 20090404

REACTIONS (1)
  - MUSCLE SPASMS [None]
